FAERS Safety Report 6077460-6 (Version None)
Quarter: 2009Q1

REPORT INFORMATION
  Report Type: 
  Country: None (occurrence: None)
  Receive Date: 20090213
  Receipt Date: 20081114
  Transmission Date: 20090719
  Serious: No
  Sender: FDA-Public Use
  Company Number: A0756478A

PATIENT
  Sex: Female

DRUGS (1)
  1. TREXIMET [Suspect]
     Indication: MIGRAINE
     Dosage: 85MG AS REQUIRED
     Route: 048

REACTIONS (4)
  - MASTICATION DISORDER [None]
  - MUSCLE TIGHTNESS [None]
  - SPEECH DISORDER [None]
  - TRISMUS [None]
